FAERS Safety Report 12855349 (Version 2)
Quarter: 2016Q4

REPORT INFORMATION
  Report Type: Spontaneous
  Country: TR (occurrence: TR)
  Receive Date: 20161017
  Receipt Date: 20161025
  Transmission Date: 20170207
  Serious: Yes (Other)
  Sender: FDA-Public Use
  Company Number: PHHY2016TR138331

PATIENT
  Age: 67 Year
  Sex: Male

DRUGS (5)
  1. LEVODOPA [Concomitant]
     Active Substance: LEVODOPA
     Indication: PARKINSON^S DISEASE
     Route: 065
  2. PRAMIPEXOLE. [Suspect]
     Active Substance: PRAMIPEXOLE
     Indication: PARKINSON^S DISEASE
     Dosage: 0.5 MG, QD
     Route: 065
  3. ENTACAPONE. [Concomitant]
     Active Substance: ENTACAPONE
     Indication: PARKINSON^S DISEASE
     Route: 065
  4. PRAMIPEXOLE. [Suspect]
     Active Substance: PRAMIPEXOLE
     Dosage: 1 MG, QD
     Route: 065
  5. BENSERAZIDE [Concomitant]
     Active Substance: BENSERAZIDE
     Indication: PARKINSON^S DISEASE
     Dosage: 375 MG, QD
     Route: 065

REACTIONS (2)
  - Mania [Recovered/Resolved]
  - Affective disorder [Recovered/Resolved]
